FAERS Safety Report 14981959 (Version 9)
Quarter: 2020Q2

REPORT INFORMATION
  Report Type: Report from Study
  Country: US (occurrence: US)
  Receive Date: 20180607
  Receipt Date: 20200602
  Transmission Date: 20200713
  Serious: Yes (Hospitalization)
  Sender: FDA-Public Use
  Company Number: US-ROCHE-2135184

PATIENT
  Age: 60 Year
  Sex: Female
  Weight: 64 kg

DRUGS (44)
  1. DOCUSATE [Concomitant]
     Active Substance: DOCUSATE
     Route: 048
     Dates: start: 20180629, end: 20180702
  2. LACTATED RINGERS SOLUTION [Concomitant]
     Active Substance: CALCIUM CHLORIDE\POTASSIUM CHLORIDE\SODIUM CHLORIDE\SODIUM LACTATE
     Route: 042
     Dates: start: 20180603, end: 20180607
  3. LACTATED RINGERS SOLUTION [Concomitant]
     Active Substance: CALCIUM CHLORIDE\POTASSIUM CHLORIDE\SODIUM CHLORIDE\SODIUM LACTATE
     Route: 042
     Dates: start: 20180630, end: 20180630
  4. HEPARIN [Concomitant]
     Active Substance: HEPARIN SODIUM
     Route: 058
     Dates: start: 20180629, end: 20180702
  5. SENNA [Concomitant]
     Active Substance: SENNA LEAF\SENNOSIDES\SENNOSIDES A AND B
     Route: 048
     Dates: start: 20180629, end: 20180702
  6. IPRATROPIUM/ALBUTEROL [Concomitant]
     Active Substance: ALBUTEROL\IPRATROPIUM
     Indication: WHEEZING
     Route: 050
     Dates: start: 20180629, end: 20180702
  7. OXYCODONE [Concomitant]
     Active Substance: OXYCODONE
     Route: 048
     Dates: start: 20180629, end: 20180702
  8. CHOLECALCIFEROL [Concomitant]
     Active Substance: CHOLECALCIFEROL
     Dosage: 2000 UNITS
     Route: 048
     Dates: start: 2008
  9. OMEGA-3 FATTY ACIDS [Concomitant]
     Active Substance: OMEGA-3 FATTY ACIDS
     Route: 048
     Dates: start: 2003
  10. VALTREX [Concomitant]
     Active Substance: VALACYCLOVIR HYDROCHLORIDE
     Indication: LIP INFECTION
     Route: 048
     Dates: start: 2003
  11. POLYETHYLENE GLYCOL [MACROGOL] [Concomitant]
     Indication: CONSTIPATION
     Route: 048
     Dates: start: 20180606, end: 20180607
  12. CLINDAMYCIN. [Concomitant]
     Active Substance: CLINDAMYCIN
     Indication: BACTERIAL INFECTION
     Route: 042
     Dates: start: 20180629, end: 20180629
  13. BUPIVACAINE;FENTANYL [Concomitant]
     Dosage: BUPIVACAINE 0.0625% AND?FENTANYL 4MCG/ML
     Route: 042
     Dates: start: 20180629, end: 20180701
  14. LIDOCAINE. [Concomitant]
     Active Substance: LIDOCAINE
     Indication: PAIN
     Route: 061
     Dates: start: 20180701, end: 20180702
  15. CEFEPIME [Concomitant]
     Active Substance: CEFEPIME HYDROCHLORIDE
     Dosage: CEFEPIME 1G IN SODIUM?CHLORIDE 0.9%
     Route: 042
     Dates: start: 20180603, end: 20180607
  16. LACTATED RINGERS SOLUTION [Concomitant]
     Active Substance: CALCIUM CHLORIDE\POTASSIUM CHLORIDE\SODIUM CHLORIDE\SODIUM LACTATE
     Route: 042
     Dates: start: 20180629, end: 20180629
  17. HEPARIN [Concomitant]
     Active Substance: HEPARIN SODIUM
     Route: 058
     Dates: start: 20180604, end: 20180609
  18. GABAPENTIN. [Concomitant]
     Active Substance: GABAPENTIN
     Indication: PROCEDURAL PAIN
     Route: 048
     Dates: start: 20180629, end: 20180629
  19. LACTATED RINGERS SOLUTION [Concomitant]
     Active Substance: CALCIUM CHLORIDE\POTASSIUM CHLORIDE\SODIUM CHLORIDE\SODIUM LACTATE
     Route: 042
     Dates: start: 20180608, end: 20180608
  20. POLYETHYLENE GLYCOL [MACROGOL] [Concomitant]
     Route: 048
     Dates: start: 20180608, end: 20180609
  21. LORATADINE. [Concomitant]
     Active Substance: LORATADINE
     Indication: SEASONAL ALLERGY
     Route: 048
     Dates: start: 1998
  22. LACTATED RINGERS SOLUTION [Concomitant]
     Active Substance: CALCIUM CHLORIDE\POTASSIUM CHLORIDE\SODIUM CHLORIDE\SODIUM LACTATE
     Route: 042
     Dates: start: 20180608, end: 20180608
  23. POLYETHYLENE GLYCOL [MACROGOL] [Concomitant]
     Route: 048
     Dates: start: 20180701, end: 20180702
  24. MAGNESIUM OXIDE. [Concomitant]
     Active Substance: MAGNESIUM OXIDE
     Route: 048
     Dates: start: 20180607, end: 20180609
  25. CLINDAMYCIN. [Concomitant]
     Active Substance: CLINDAMYCIN
     Route: 042
     Dates: start: 20180630, end: 20180630
  26. BUPIVACAINE;EPINEPHRINE [Concomitant]
     Route: 042
     Dates: start: 20180629, end: 20180629
  27. ACETAMINOPHEN. [Concomitant]
     Active Substance: ACETAMINOPHEN
     Indication: PAIN
     Route: 048
     Dates: start: 201804
  28. ASCORBIC ACID. [Concomitant]
     Active Substance: ASCORBIC ACID
     Route: 048
     Dates: start: 2017
  29. CALCIUM CARBONATE. [Concomitant]
     Active Substance: CALCIUM CARBONATE
     Route: 048
     Dates: start: 2008
  30. DOCUSATE [Concomitant]
     Active Substance: DOCUSATE
     Route: 048
     Dates: start: 20180606, end: 20180609
  31. ONDANSETRON [Concomitant]
     Active Substance: ONDANSETRON
     Indication: NAUSEA
     Route: 048
     Dates: start: 20180603, end: 20180609
  32. DEXTROSE;POTASSIUM CHLORIDE;SODIUM CHLORIDE [Concomitant]
     Route: 042
     Dates: start: 20180629, end: 20180630
  33. ATEZOLIZUMAB. [Suspect]
     Active Substance: ATEZOLIZUMAB
     Indication: NON-SMALL CELL LUNG CANCER
     Route: 042
     Dates: start: 20180523
  34. ACETAMINOPHEN. [Concomitant]
     Active Substance: ACETAMINOPHEN
     Route: 048
     Dates: start: 20180629, end: 20180702
  35. MAGNESIUM [Concomitant]
     Active Substance: MAGNESIUM
     Route: 065
     Dates: start: 201406
  36. HYDROMORPHONE [Concomitant]
     Active Substance: HYDROMORPHONE
     Indication: PAIN
     Route: 042
     Dates: start: 20180629, end: 20180629
  37. OXYCODONE [Concomitant]
     Active Substance: OXYCODONE
     Indication: PAIN
     Route: 048
     Dates: start: 20180629, end: 20180702
  38. LORAZEPAM. [Concomitant]
     Active Substance: LORAZEPAM
     Indication: ANXIETY
     Route: 048
     Dates: start: 201803
  39. LORAZEPAM. [Concomitant]
     Active Substance: LORAZEPAM
     Indication: INSOMNIA
  40. SENNA [Concomitant]
     Active Substance: SENNA LEAF\SENNOSIDES\SENNOSIDES A AND B
     Indication: CONSTIPATION
     Route: 048
     Dates: start: 20180607, end: 20180609
  41. BISACODYL. [Concomitant]
     Active Substance: BISACODYL
     Indication: CONSTIPATION
     Route: 054
     Dates: start: 20180701, end: 20180702
  42. IBUPROFEN. [Concomitant]
     Active Substance: IBUPROFEN
     Indication: HEADACHE
     Route: 048
  43. ACETAMINOPHEN. [Concomitant]
     Active Substance: ACETAMINOPHEN
     Indication: PROCEDURAL PAIN
     Route: 048
     Dates: start: 20180629, end: 20180629
  44. DOCUSATE [Concomitant]
     Active Substance: DOCUSATE
     Indication: CONSTIPATION
     Route: 048
     Dates: start: 201312

REACTIONS (2)
  - Pyrexia [Recovered/Resolved]
  - Influenza like illness [Recovered/Resolved]

NARRATIVE: CASE EVENT DATE: 20180603
